FAERS Safety Report 10304936 (Version 1)
Quarter: 2014Q3

REPORT INFORMATION
  Report Type: Spontaneous
  Country: US (occurrence: US)
  Receive Date: 20140715
  Receipt Date: 20140715
  Transmission Date: 20150326
  Serious: No
  Sender: FDA-Public Use
  Company Number: US-DRREDDYS-USA/USA/14/0040000

PATIENT
  Age: 59 Year
  Sex: Male

DRUGS (4)
  1. LEVOFLOXACIN TABLETS [Suspect]
     Active Substance: LEVOFLOXACIN
     Indication: SINUSITIS
     Route: 048
     Dates: start: 20140320
  2. NASACORT [Concomitant]
     Active Substance: TRIAMCINOLONE ACETONIDE
     Indication: PRODUCT USED FOR UNKNOWN INDICATION
     Route: 065
  3. LEVOFLOXACIN TABLETS [Suspect]
     Active Substance: LEVOFLOXACIN
     Route: 048
     Dates: end: 20140416
  4. SYMBICORT [Concomitant]
     Active Substance: BUDESONIDE\FORMOTEROL FUMARATE DIHYDRATE
     Indication: PRODUCT USED FOR UNKNOWN INDICATION
     Route: 065

REACTIONS (3)
  - Ligament disorder [Unknown]
  - Tendon injury [Unknown]
  - Muscle strain [Unknown]

NARRATIVE: CASE EVENT DATE: 20140411
